FAERS Safety Report 8082686-6 (Version None)
Quarter: 2012Q1

REPORT INFORMATION
  Report Type: 
  Country: None (occurrence: None)
  Receive Date: 20120127
  Receipt Date: 20110224
  Transmission Date: 20120608
  Serious: No
  Sender: FDA-Public Use
  Company Number: US-ABBOTT-11P-163-0707601-00

PATIENT
  Age: 27 Year
  Sex: Female

DRUGS (3)
  1. BIRTH CONTROL [Concomitant]
     Indication: PRODUCT USED FOR UNKNOWN INDICATION
     Dosage: 1 PILL DAILY
  2. ENTOCORT EC [Concomitant]
     Indication: PRODUCT USED FOR UNKNOWN INDICATION
     Dosage: 3 PILLS A DAY
  3. HUMIRA [Suspect]
     Indication: CROHN'S DISEASE
     Dates: start: 20110201

REACTIONS (1)
  - INJECTION SITE SWELLING [None]
